FAERS Safety Report 23866039 (Version 1)
Quarter: 2024Q2

REPORT INFORMATION
  Report Type: Spontaneous
  Country: EU (occurrence: None)
  Receive Date: 20240517
  Receipt Date: 20240517
  Transmission Date: 20240716
  Serious: Yes (Life-Threatening)
  Sender: FDA-Public Use
  Company Number: None

PATIENT

DRUGS (2)
  1. BUPRENORPHINE HYDROCHLORIDE [Suspect]
     Active Substance: BUPRENORPHINE HYDROCHLORIDE
  2. COCAINE [Suspect]
     Active Substance: COCAINE

REACTIONS (5)
  - Substance use disorder [Unknown]
  - Pneumonia aspiration [Unknown]
  - Rhabdomyolysis [Recovered/Resolved]
  - Drug use disorder [Unknown]
  - Coma [Recovered/Resolved]

NARRATIVE: CASE EVENT DATE: 20240229
